FAERS Safety Report 6829417-2 (Version None)
Quarter: 2010Q3

REPORT INFORMATION
  Report Type: 
  Country: None (occurrence: None)
  Receive Date: 20100709
  Receipt Date: 20070305
  Transmission Date: 20110219
  Serious: Yes (Other)
  Sender: FDA-Public Use
  Company Number: US-PFIZER INC-2007008081

PATIENT
  Age: 63 Year
  Sex: Male
  Weight: 82 kg

DRUGS (11)
  1. CHANTIX [Suspect]
     Indication: EX-TOBACCO USER
     Dates: start: 20070112
  2. VYTORIN [Concomitant]
  3. PROVIGIL [Concomitant]
  4. FOLIC ACID [Concomitant]
  5. ATENOLOL [Concomitant]
  6. BUSPIRONE HCL [Concomitant]
  7. WARFARIN SODIUM [Concomitant]
  8. ALLOPURINOL [Concomitant]
  9. VITAMIN B-12 [Concomitant]
  10. BUSPAR [Concomitant]
  11. VITAMIN D [Concomitant]

REACTIONS (3)
  - ABNORMAL DREAMS [None]
  - HALLUCINATION [None]
  - SLEEP DISORDER [None]
